FAERS Safety Report 8178505-X (Version None)
Quarter: 2012Q1

REPORT INFORMATION
  Report Type: 
  Country: None (occurrence: None)
  Receive Date: 20120301
  Receipt Date: 20120222
  Transmission Date: 20120608
  Serious: Yes (Other)
  Sender: FDA-Public Use
  Company Number: PHHY2012IN015291

PATIENT
  Age: 75 Year
  Sex: Female

DRUGS (4)
  1. TERIPARATIDE [Concomitant]
     Indication: FEMUR FRACTURE
     Dosage: 20 UG, QD
     Route: 058
  2. CALCIUM [Concomitant]
  3. ALENDRONIC ACID [Suspect]
     Indication: OSTEOPENIA
     Dosage: 70 MG, QW
  4. BISPHOSPHONATES [Concomitant]

REACTIONS (6)
  - INJURY [None]
  - HYPERPARATHYROIDISM [None]
  - FEMUR FRACTURE [None]
  - VITAMIN D DEFICIENCY [None]
  - PAIN IN EXTREMITY [None]
  - HYPERTROPHY [None]
